FAERS Safety Report 23130438 (Version 2)
Quarter: 2023Q4

REPORT INFORMATION
  Report Type: Spontaneous
  Country: FR (occurrence: FR)
  Receive Date: 20231031
  Receipt Date: 20231225
  Transmission Date: 20240110
  Serious: Yes (Other)
  Sender: FDA-Public Use
  Company Number: FR-Accord-386716

PATIENT
  Age: 52 Year
  Sex: Male
  Weight: 92 kg

DRUGS (3)
  1. OXALIPLATIN [Suspect]
     Active Substance: OXALIPLATIN
     Indication: Product used for unknown indication
     Dosage: 1ST CYCLE 260 MG (200 MG/ 40 ML) AND 260 MG (100 MG/20 ML), INJECTION
     Route: 042
     Dates: start: 20230629, end: 20230629
  2. METHYLPREDNISOLONE [Concomitant]
     Active Substance: METHYLPREDNISOLONE
     Indication: Product used for unknown indication
     Dosage: 120 MG POWDER FOR PREFUSION SOLUTION
     Route: 042
     Dates: start: 20230629, end: 20230629
  3. ONDANSETRON [Concomitant]
     Active Substance: ONDANSETRON
     Indication: Product used for unknown indication
     Dosage: 8 MG
     Route: 042
     Dates: start: 20230629, end: 20230629

REACTIONS (3)
  - Paraesthesia oral [Unknown]
  - Paraesthesia [Unknown]
  - Presyncope [Unknown]

NARRATIVE: CASE EVENT DATE: 20230629
